FAERS Safety Report 5179669-2 (Version None)
Quarter: 2006Q4

REPORT INFORMATION
  Report Type: 
  Country: None (occurrence: None)
  Receive Date: 20061212
  Receipt Date: 20061130
  Transmission Date: 20070319
  Serious: Yes (Hospitalization)
  Sender: FDA-Public Use
  Company Number: PAR_1137_2006

PATIENT
  Age: 6 Year
  Sex: Male
  Weight: 19 kg

DRUGS (1)
  1. CAPOTEN [Suspect]
     Dosage: 3 TAB ONCE PO
     Route: 048
     Dates: start: 20061026, end: 20061026

REACTIONS (3)
  - ACCIDENTAL EXPOSURE [None]
  - HOSPITALISATION [None]
  - NO ADVERSE EFFECT [None]
